FAERS Safety Report 13620139 (Version 3)
Quarter: 2017Q2

REPORT INFORMATION
  Report Type: Spontaneous
  Country: JP (occurrence: JP)
  Receive Date: 20170607
  Receipt Date: 20170629
  Transmission Date: 20170830
  Serious: Yes (Other)
  Sender: FDA-Public Use
  Company Number: JP-ROCHE-1944309

PATIENT
  Age: 6 Year
  Sex: Female

DRUGS (2)
  1. CICLOSPORIN [Concomitant]
     Active Substance: CYCLOSPORINE
     Indication: STILL^S DISEASE
     Dosage: DOSAGE IS UNCERTAIN.
     Route: 065
  2. ACTEMRA [Suspect]
     Active Substance: TOCILIZUMAB
     Indication: STILL^S DISEASE
     Route: 041
     Dates: start: 20161008

REACTIONS (3)
  - Hepatic function abnormal [Not Recovered/Not Resolved]
  - Alanine aminotransferase increased [Unknown]
  - Aspartate aminotransferase increased [Unknown]

NARRATIVE: CASE EVENT DATE: 201703
